FAERS Safety Report 5931786-2 (Version None)
Quarter: 2008Q4

REPORT INFORMATION
  Report Type: 
  Country: None (occurrence: None)
  Receive Date: 20081027
  Receipt Date: 20081021
  Transmission Date: 20090506
  Serious: Yes (Life-Threatening)
  Sender: FDA-Public Use
  Company Number: GB-ASTRAZENECA-2008GB01993

PATIENT
  Sex: Male

DRUGS (4)
  1. QUETIAPINE FUMARATE [Suspect]
     Indication: INSOMNIA
     Route: 048
     Dates: start: 20071201, end: 20080701
  2. ASPIRIN [Concomitant]
  3. DIGOXIN [Concomitant]
  4. LOSARTAN [Concomitant]

REACTIONS (8)
  - CARDIOTOXICITY [None]
  - DEPRESSED LEVEL OF CONSCIOUSNESS [None]
  - DRUG INEFFECTIVE [None]
  - DYSPNOEA [None]
  - RHINITIS [None]
  - RHONCHI [None]
  - SALIVARY HYPERSECRETION [None]
  - SYNCOPE [None]
